FAERS Safety Report 19300965 (Version 1)
Quarter: 2021Q2

REPORT INFORMATION
  Report Type: Other
  Country: US (occurrence: US)
  Receive Date: 20210524
  Receipt Date: 20210524
  Transmission Date: 20210717
  Serious: Yes (Other)
  Sender: FDA-Public Use
  Company Number: US-INTERCEPT-PM2021001537

PATIENT
  Sex: Female

DRUGS (1)
  1. OCALIVA [Suspect]
     Active Substance: OBETICHOLIC ACID
     Indication: PRIMARY BILIARY CHOLANGITIS
     Dosage: 5 MILLIGRAM, QD
     Route: 048
     Dates: start: 2018

REACTIONS (9)
  - Limb operation [Unknown]
  - Hand fracture [Unknown]
  - Illness [Unknown]
  - Bone cyst [Unknown]
  - Peripheral swelling [Unknown]
  - Skin discolouration [Unknown]
  - Therapy interrupted [Unknown]
  - Pain [Unknown]
  - Unevaluable event [Unknown]
